FAERS Safety Report 6681197-X (Version None)
Quarter: 2010Q2

REPORT INFORMATION
  Report Type: 
  Country: None (occurrence: None)
  Receive Date: 20100414
  Receipt Date: 20090803
  Transmission Date: 20101027
  Serious: No
  Sender: FDA-Public Use
  Company Number: US-KINGPHARMUSA00001-K200900926

PATIENT
  Sex: Female
  Weight: 64.853 kg

DRUGS (12)
  1. SKELAXIN [Suspect]
     Indication: MUSCLE RELAXANT THERAPY
     Dosage: 800 MG, TID
     Route: 048
     Dates: start: 20090603, end: 20090603
  2. XANAX [Concomitant]
     Dosage: 2 MG, QID
     Route: 048
  3. TRAZODONE [Concomitant]
     Dosage: 100 MG, TID
  4. EFFEXOR [Concomitant]
     Dosage: 150 MG, TID
  5. FIBERCON [Concomitant]
     Dosage: UNK
  6. FISH OIL [Concomitant]
     Dosage: UNK
  7. COENZYME Q10 [Concomitant]
     Dosage: UNK
  8. MULTI-VITAMIN [Concomitant]
     Dosage: UNK
  9. LUTEIN [Concomitant]
     Dosage: UNK
  10. BIOTIN [Concomitant]
     Dosage: UNK
  11. STOOL SOFTENER [Concomitant]
     Dosage: UNK
  12. LAXATIVES [Concomitant]
     Dosage: UNK

REACTIONS (7)
  - AGORAPHOBIA [None]
  - CHEST DISCOMFORT [None]
  - DRUG INEFFECTIVE [None]
  - HEART RATE INCREASED [None]
  - INSOMNIA [None]
  - NERVOUSNESS [None]
  - TREMOR [None]
